FAERS Safety Report 15261972 (Version 2)
Quarter: 2018Q4

REPORT INFORMATION
  Report Type: Spontaneous
  Country: EG (occurrence: EG)
  Receive Date: 20180809
  Receipt Date: 20181005
  Transmission Date: 20190204
  Serious: Yes (Other)
  Sender: FDA-Public Use
  Company Number: EG-BAYER-2018-149510

PATIENT
  Sex: Female

DRUGS (1)
  1. ULTRAVIST [Suspect]
     Active Substance: IOPROMIDE
     Indication: COMPUTERISED TOMOGRAM
     Dosage: 80 ML, ONCE
     Dates: start: 201807, end: 201807

REACTIONS (2)
  - Eye swelling [None]
  - Exophthalmos [None]

NARRATIVE: CASE EVENT DATE: 201807
